FAERS Safety Report 24537852 (Version 1)
Quarter: 2024Q4

REPORT INFORMATION
  Report Type: Spontaneous
  Country: FR (occurrence: FR)
  Receive Date: 20241023
  Receipt Date: 20241023
  Transmission Date: 20250114
  Serious: Yes (Congenital Anomaly, Other)
  Sender: SANDOZ
  Company Number: FR-NOVPHSZ-PHHY2019FR216166

PATIENT
  Age: 5 Year
  Sex: Female
  Weight: 3.28 kg

DRUGS (1)
  1. VALPROATE SODIUM [Suspect]
     Active Substance: VALPROATE SODIUM
     Indication: Foetal exposure during pregnancy
     Dosage: MATERNAL DOSE 1.5 DF, Q12H
     Route: 064

REACTIONS (17)
  - Congenital pulmonary artery anomaly [Not Recovered/Not Resolved]
  - Intellectual disability [Not Recovered/Not Resolved]
  - Microcephaly [Not Recovered/Not Resolved]
  - Atrioventricular septal defect [Not Recovered/Not Resolved]
  - Autism spectrum disorder [Not Recovered/Not Resolved]
  - Ventricular septal defect [Not Recovered/Not Resolved]
  - Atelectasis [Not Recovered/Not Resolved]
  - Hypotonia [Not Recovered/Not Resolved]
  - Venous thrombosis [Not Recovered/Not Resolved]
  - Gastrooesophageal reflux disease [Unknown]
  - Hypermobility syndrome [Not Recovered/Not Resolved]
  - Kyphosis [Not Recovered/Not Resolved]
  - Congenital anomaly [Not Recovered/Not Resolved]
  - Plagiocephaly [Not Recovered/Not Resolved]
  - Trisomy 21 [Not Recovered/Not Resolved]
  - Scoliosis [Not Recovered/Not Resolved]
  - Foetal exposure during pregnancy [Unknown]
